FAERS Safety Report 24524323 (Version 1)
Quarter: 2024Q4

REPORT INFORMATION
  Report Type: Spontaneous
  Country: CN (occurrence: CN)
  Receive Date: 20241018
  Receipt Date: 20241018
  Transmission Date: 20250114
  Serious: Yes (Other)
  Sender: MERCK
  Company Number: CN-009507513-2410CHN005833

PATIENT
  Age: 68 Year
  Sex: Male
  Weight: 46 kg

DRUGS (2)
  1. INVANZ [Suspect]
     Active Substance: ERTAPENEM SODIUM
     Indication: Infection
     Dosage: 1.0 G, QD
     Route: 041
     Dates: start: 20240926, end: 20240929
  2. SODIUM CHLORIDE [Concomitant]
     Active Substance: SODIUM CHLORIDE
     Indication: Medication dilution
     Dosage: 100 ML, QD
     Route: 041
     Dates: start: 20240926, end: 20240929

REACTIONS (3)
  - Psychotic disorder [Recovering/Resolving]
  - Delirium [Unknown]
  - Memory impairment [Unknown]

NARRATIVE: CASE EVENT DATE: 20240901
